FAERS Safety Report 11996059 (Version 2)
Quarter: 2016Q2

REPORT INFORMATION
  Report Type: Spontaneous
  Country: US (occurrence: US)
  Receive Date: 20160203
  Receipt Date: 20160526
  Transmission Date: 20160815
  Serious: Yes (Death, Life-Threatening, Hospitalization, Disabling, Other)
  Sender: FDA-Public Use
  Company Number: US-009507513-1602USA001370

PATIENT
  Sex: Female
  Weight: 90.7 kg

DRUGS (1)
  1. JANUVIA [Suspect]
     Active Substance: SITAGLIPTIN PHOSPHATE
     Indication: TYPE 2 DIABETES MELLITUS
     Dosage: 100 MG QD
     Route: 048
     Dates: start: 20090109, end: 20130206

REACTIONS (28)
  - Supraventricular tachycardia [Recovered/Resolved]
  - Tonsillectomy [Unknown]
  - Sinus tachycardia [Unknown]
  - Thrombophlebitis superficial [Unknown]
  - Intervertebral disc space narrowing [Unknown]
  - Metastases to liver [Unknown]
  - Spinal compression fracture [Unknown]
  - Hyperlipidaemia [Unknown]
  - Cataract [Unknown]
  - Atrial fibrillation [Unknown]
  - Adenocarcinoma pancreas [Unknown]
  - Death [Fatal]
  - Deep vein thrombosis [Unknown]
  - Spinal osteoarthritis [Unknown]
  - Spinal column stenosis [Unknown]
  - Thrombocytopenia [Unknown]
  - Hypertension [Unknown]
  - Gastrooesophageal reflux disease [Unknown]
  - Syncope [Unknown]
  - Adenoidectomy [Unknown]
  - Transient ischaemic attack [Unknown]
  - Dehydration [Unknown]
  - Pancreatitis [Unknown]
  - Haemorrhage [Unknown]
  - Corneal transplant [Unknown]
  - Asthenia [Unknown]
  - Cyst [Unknown]
  - Thrombophlebitis superficial [Unknown]

NARRATIVE: CASE EVENT DATE: 20140207
